FAERS Safety Report 9671013 (Version 1)
Quarter: 2013Q4

REPORT INFORMATION
  Report Type: Spontaneous
  Country: US (occurrence: US)
  Receive Date: 20131106
  Receipt Date: 20131106
  Transmission Date: 20140711
  Serious: Yes (Hospitalization)
  Sender: FDA-Public Use
  Company Number: US-SA-2013SA112407

PATIENT
  Age: 66 Year
  Sex: Male

DRUGS (2)
  1. LOVENOX [Suspect]
     Indication: THROMBOSIS
     Route: 065
     Dates: start: 201302
  2. LOVENOX [Suspect]
     Indication: THROMBOSIS
     Route: 065

REACTIONS (5)
  - Adverse event [Recovered/Resolved]
  - Haemoptysis [Recovered/Resolved]
  - Back pain [Recovered/Resolved]
  - Confusional state [Recovered/Resolved]
  - Weight decreased [Recovered/Resolved]
